FAERS Safety Report 5051659-X (Version None)
Quarter: 2006Q3

REPORT INFORMATION
  Report Type: 
  Country: None (occurrence: None)
  Receive Date: 20060711
  Receipt Date: 20060628
  Transmission Date: 20061208
  Serious: Yes (Hospitalization)
  Sender: FDA-Public Use
  Company Number: 8017584

PATIENT
  Age: 60 Year
  Sex: Female
  Weight: 63.63 kg

DRUGS (7)
  1. ZAROXOLYN [Suspect]
     Indication: CHRONIC OBSTRUCTIVE PULMONARY DISEASE
     Dates: end: 20050101
  2. XOPENEX [Concomitant]
  3. IPRATROPIUM BROMIDE [Concomitant]
  4. FLOVENT [Concomitant]
  5. ACTONEL [Concomitant]
  6. WARFARIN SODIUM [Concomitant]
  7. OXYGEN [Concomitant]

REACTIONS (6)
  - ANOREXIA [None]
  - BRONCHITIS [None]
  - FLUID RETENTION [None]
  - PNEUMONIA [None]
  - THERAPY NON-RESPONDER [None]
  - WEIGHT INCREASED [None]
